FAERS Safety Report 4300768-9 (Version None)
Quarter: 2004Q1

REPORT INFORMATION
  Report Type: 
  Country: None (occurrence: None)
  Receive Date: 20040218
  Receipt Date: 20040204
  Transmission Date: 20041129
  Serious: Yes (Other)
  Sender: FDA-Public Use
  Company Number: US-JNJFOC-20030803766

PATIENT
  Age: 17 Year
  Sex: Male

DRUGS (1)
  1. REMICADE [Suspect]
     Indication: CROHN'S DISEASE
     Dosage: INTRAVENOUS
     Route: 042
     Dates: start: 20021101

REACTIONS (14)
  - ABDOMINAL ADHESIONS [None]
  - ABDOMINAL PAIN [None]
  - APPENDICITIS PERFORATED [None]
  - BLADDER DISORDER [None]
  - BLADDER MASS [None]
  - DYSURIA [None]
  - HAEMATURIA [None]
  - HYDRONEPHROSIS [None]
  - ILEAL STENOSIS [None]
  - PENILE PAIN [None]
  - PYREXIA [None]
  - RESIDUAL URINE VOLUME [None]
  - SMALL INTESTINAL OBSTRUCTION [None]
  - WEIGHT DECREASED [None]
